FAERS Safety Report 17044845 (Version 1)
Quarter: 2019Q4

REPORT INFORMATION
  Report Type: Spontaneous
  Country: GB (occurrence: GB)
  Receive Date: 20191118
  Receipt Date: 20191118
  Transmission Date: 20200122
  Serious: Yes (Other)
  Sender: FDA-Public Use
  Company Number: GB-SEPTODONT-201905582

PATIENT
  Age: 22 Year
  Sex: Male
  Weight: 61.4 kg

DRUGS (5)
  1. OMEPRAZOLE. [Concomitant]
     Active Substance: OMEPRAZOLE
  2. FERROUS FUMARATE [Concomitant]
     Active Substance: FERROUS FUMARATE
  3. LOPERAMIDE HYDROCHLORIDE. [Concomitant]
     Active Substance: LOPERAMIDE HYDROCHLORIDE
  4. CO-AMOXICLAV [Concomitant]
     Active Substance: AMOXICILLIN\CLAVULANATE POTASSIUM
     Indication: INTRAOPERATIVE CARE
     Route: 042
     Dates: start: 20190328, end: 20190328
  5. LIGNOSPAN [Suspect]
     Active Substance: LIDOCAINE HYDROCHLORIDE
     Indication: INTRAOPERATIVE CARE
     Route: 058
     Dates: start: 20190328, end: 20190328

REACTIONS (3)
  - Incorrect route of product administration [Recovered/Resolved]
  - Anaphylactic reaction [Recovered/Resolved]
  - Off label use [Recovered/Resolved]

NARRATIVE: CASE EVENT DATE: 20190328
